FAERS Safety Report 10691450 (Version 1)
Quarter: 2015Q1

REPORT INFORMATION
  Report Type: Spontaneous
  Country: US (occurrence: US)
  Receive Date: 20150105
  Receipt Date: 20150105
  Transmission Date: 20150720
  Serious: Yes (Other)
  Sender: FDA-Public Use
  Company Number: US-BAYER-2015-000380

PATIENT
  Age: 21 Year
  Sex: Female

DRUGS (1)
  1. SKYLA [Suspect]
     Active Substance: LEVONORGESTREL
     Indication: CONTRACEPTION
     Dosage: UNK
     Route: 015
     Dates: start: 20130521, end: 20141121

REACTIONS (7)
  - Procedural pain [Recovered/Resolved]
  - Dehydration [Recovered/Resolved]
  - Impaired work ability [Recovered/Resolved]
  - Procedural vomiting [Recovered/Resolved]
  - Abdominal pain lower [Recovered/Resolved]
  - Enuresis [Recovered/Resolved]
  - Ovarian cyst [Recovered/Resolved]
